FAERS Safety Report 10795403 (Version 1)
Quarter: 2015Q1

REPORT INFORMATION
  Report Type: Report from Study
  Country: IN (occurrence: IN)
  Receive Date: 20150214
  Receipt Date: 20150214
  Transmission Date: 20150721
  Serious: Yes (Death, Hospitalization)
  Sender: FDA-Public Use
  Company Number: PHHY2015IN017725

PATIENT
  Age: 71 Year
  Sex: Male

DRUGS (1)
  1. SANDIMMUN NEORAL [Suspect]
     Active Substance: CYCLOSPORINE
     Indication: TRANSPLANT
     Dosage: 125 MG, QD (75 MG IN MORNING + 50 MG IN EVENING)
     Route: 048
     Dates: start: 2005

REACTIONS (5)
  - Chest pain [Fatal]
  - Asthenia [Unknown]
  - Dyspnoea [Fatal]
  - Blood creatinine increased [Unknown]
  - Herpes virus infection [Unknown]
